FAERS Safety Report 9427923 (Version 1)
Quarter: 2013Q3

REPORT INFORMATION
  Report Type: Spontaneous
  Country: HK (occurrence: HK)
  Receive Date: 20130730
  Receipt Date: 20130730
  Transmission Date: 20140515
  Serious: Yes (Death)
  Sender: FDA-Public Use
  Company Number: HK-PFIZER INC-2013220149

PATIENT
  Age: 66 Year
  Sex: Male

DRUGS (1)
  1. NORVASC [Suspect]

REACTIONS (1)
  - Death [Fatal]
